FAERS Safety Report 9016114 (Version 3)
Quarter: 2013Q1

REPORT INFORMATION
  Report Type: Spontaneous
  Country: US (occurrence: US)
  Receive Date: 20130116
  Receipt Date: 20130206
  Transmission Date: 20140127
  Serious: Yes (Other)
  Sender: FDA-Public Use
  Company Number: US-PFIZER INC-2013015407

PATIENT
  Age: 48 Year
  Sex: Female
  Weight: 69.39 kg

DRUGS (5)
  1. PRISTIQ [Suspect]
     Indication: BIPOLAR DISORDER
     Dosage: 100MG DAILY
     Dates: start: 2009
  2. PRISTIQ [Suspect]
     Indication: DEPRESSION
  3. XANAX [Concomitant]
     Indication: ANXIETY
     Dosage: 1 MG, AS NEEDED, TWO TO THREE TIMES A DAY
     Route: 048
  4. IBUPROFEN [Concomitant]
     Indication: PAIN IN EXTREMITY
     Dosage: 400 MG, 2X/DAY
     Route: 048
  5. IBUPROFEN [Concomitant]
     Indication: BACK PAIN

REACTIONS (6)
  - Appendix disorder [Unknown]
  - Neoplasm [Unknown]
  - Thrombosis [Unknown]
  - Depressed mood [Recovered/Resolved]
  - Irritability [Recovered/Resolved]
  - Feeling abnormal [Recovered/Resolved]
